FAERS Safety Report 11275734 (Version 1)
Quarter: 2015Q2

REPORT INFORMATION
  Report Type: Spontaneous
  Country: US (occurrence: None)
  Receive Date: 20150625
  Receipt Date: 20150625
  Transmission Date: 20150821
  Serious: Yes (Other)
  Sender: FDA-Public Use
  Company Number: PHEH2015US003943

PATIENT
  Sex: Female

DRUGS (2)
  1. RIFAMPIN (RIFAMPICIN) (RIFAMPICIN) [Concomitant]
     Active Substance: RIFAMPIN
  2. ZYKADIA [Suspect]
     Active Substance: CERITINIB
     Indication: PRODUCT USED FOR UNKNOWN INDICATION

REACTIONS (1)
  - Pneumonitis [None]
